FAERS Safety Report 14953047 (Version 1)
Quarter: 2018Q2

REPORT INFORMATION
  Report Type: Spontaneous
  Country: CH (occurrence: CH)
  Receive Date: 20180530
  Receipt Date: 20180530
  Transmission Date: 20180711
  Serious: Yes (Other)
  Sender: FDA-Public Use
  Company Number: CH-BAYER-2018-007667

PATIENT
  Age: 74 Year
  Weight: 75 kg

DRUGS (2)
  1. XOFIGO [Suspect]
     Active Substance: RADIUM RA-223 DICHLORIDE
     Indication: PROSTATE CANCER METASTATIC
     Dosage: 4.16 MBQ, UNK
  2. XOFIGO [Suspect]
     Active Substance: RADIUM RA-223 DICHLORIDE
     Indication: PROSTATE CANCER METASTATIC
     Dosage: 4.16 MBQ, UNK
     Dates: start: 20171220, end: 20171220

REACTIONS (4)
  - Haemoglobin decreased [None]
  - Lung infection [None]
  - General physical health deterioration [None]
  - Dyspnoea [None]

NARRATIVE: CASE EVENT DATE: 2017
